FAERS Safety Report 17994173 (Version 1)
Quarter: 2020Q3

REPORT INFORMATION
  Report Type: Spontaneous
  Country: US (occurrence: US)
  Receive Date: 20200708
  Receipt Date: 20200708
  Transmission Date: 20201103
  Serious: No
  Sender: FDA-Public Use
  Company Number: US-ALKEM LABORATORIES LIMITED-US-ALKEM-2020-02179

PATIENT
  Sex: Female

DRUGS (2)
  1. VALSARTAN 80MG [Suspect]
     Active Substance: VALSARTAN
     Indication: BLOOD PRESSURE INCREASED
     Dosage: 1 DOSAGE FORM, OD
     Route: 065
     Dates: start: 20200424, end: 20200514
  2. ATENOLE [Concomitant]
     Indication: PRODUCT USED FOR UNKNOWN INDICATION
     Dosage: UNK, OD
     Route: 065
     Dates: start: 19990201

REACTIONS (5)
  - Headache [Not Recovered/Not Resolved]
  - Nervousness [Recovering/Resolving]
  - Product substitution issue [Unknown]
  - Feeling abnormal [Recovering/Resolving]
  - Pruritus [Recovering/Resolving]

NARRATIVE: CASE EVENT DATE: 20200424
